FAERS Safety Report 23498806 (Version 2)
Quarter: 2024Q1

REPORT INFORMATION
  Report Type: Report from Study
  Country: GB (occurrence: GB)
  Receive Date: 20240208
  Receipt Date: 20240219
  Transmission Date: 20240409
  Serious: Yes (Other)
  Sender: FDA-Public Use
  Company Number: GB-ABBVIE-5441756

PATIENT
  Sex: Male

DRUGS (6)
  1. CARBIDOPA\LEVODOPA [Suspect]
     Active Substance: CARBIDOPA\LEVODOPA
     Indication: Parkinson^s disease
     Dosage: MD: 8.0, CR: 3.7ML, ED: 3.0
     Route: 050
  2. CARBIDOPA\LEVODOPA [Suspect]
     Active Substance: CARBIDOPA\LEVODOPA
     Dosage: MD 8.0MLS CR 3.9MLS ED 3.0MLS, LL2, 20MGS/5MGS
     Route: 050
     Dates: start: 2024, end: 2024
  3. CARBIDOPA\LEVODOPA [Suspect]
     Active Substance: CARBIDOPA\LEVODOPA
     Dosage: MD: 7.8 MLS   CR:  3.5 MLS  ED: 2.8 MLS
     Route: 050
     Dates: start: 2024, end: 2024
  4. CARBIDOPA\LEVODOPA [Suspect]
     Active Substance: CARBIDOPA\LEVODOPA
     Dosage: MD: 7.8, CR: 3.4MLS/HR, ED: 2.8
     Route: 050
     Dates: start: 2024
  5. CARBIDOPA\LEVODOPA [Suspect]
     Active Substance: CARBIDOPA\LEVODOPA
     Dosage: MD: 8.0, CR: 3.7ML, ED: 3.0
     Route: 050
     Dates: end: 2024
  6. AMITRIPTYLINE [Concomitant]
     Active Substance: AMITRIPTYLINE
     Indication: Product used for unknown indication
     Dosage: FREQUENCY : AT 20.00 PM

REACTIONS (13)
  - Loss of consciousness [Unknown]
  - Weight decreased [Recovered/Resolved]
  - Depressed mood [Unknown]
  - Dyskinesia [Not Recovered/Not Resolved]
  - Device leakage [Recovered/Resolved]
  - Orthostatic hypotension [Unknown]
  - Device physical property issue [Unknown]
  - Skin induration [Unknown]
  - Fall [Not Recovered/Not Resolved]
  - Dizziness [Recovering/Resolving]
  - Torticollis [Unknown]
  - Pain [Unknown]
  - Muscle spasms [Unknown]
